FAERS Safety Report 9261499 (Version 3)
Quarter: 2013Q2

REPORT INFORMATION
  Report Type: Report from Study
  Country: GB (occurrence: GB)
  Receive Date: 20130429
  Receipt Date: 20130515
  Transmission Date: 20140414
  Serious: Yes (Death, Hospitalization)
  Sender: FDA-Public Use
  Company Number: GB-ASTRAZENECA-2013SE27046

PATIENT
  Age: 67 Year
  Sex: Female

DRUGS (16)
  1. SARACATINIB [Suspect]
     Indication: BREAST CANCER FEMALE
     Route: 048
     Dates: start: 20130228, end: 20130411
  2. EXEMESTANE [Suspect]
     Indication: BREAST CANCER FEMALE
     Route: 065
     Dates: start: 20130227, end: 20130411
  3. ATENOLOL [Concomitant]
     Indication: HYPERTENSION
     Dates: start: 19970308, end: 20130411
  4. LISINOPRIL [Concomitant]
     Indication: HYPERTENSION
     Dates: start: 19990720, end: 20130411
  5. CITALOPRAM [Concomitant]
     Indication: DEPRESSION
     Dates: start: 20090326, end: 20130411
  6. CO-BENELDOPA [Concomitant]
     Indication: PARKINSONISM
     Dates: start: 20110610, end: 20130411
  7. COLECALCIFEROL [Concomitant]
     Indication: BONE DISORDER
     Dosage: 400 DAILY
     Dates: start: 20110610, end: 20130411
  8. NAPROXEN [Concomitant]
     Indication: ANALGESIC THERAPY
     Dates: start: 20120326, end: 20130411
  9. NITROFURANTOIN [Concomitant]
     Indication: URINARY TRACT INFECTION
     Dates: start: 20110629, end: 20130411
  10. OMEPRAZOLE [Concomitant]
     Indication: GASTRITIS PROPHYLAXIS
     Dates: start: 20100323, end: 20130411
  11. ORAMORPH [Concomitant]
     Indication: ANALGESIC THERAPY
     Dates: start: 20111123, end: 20130411
  12. PARACETAMOL [Concomitant]
     Indication: ANALGESIC THERAPY
     Dates: start: 20110421, end: 20130411
  13. PREGABALIN [Concomitant]
     Indication: ANXIETY
     Dates: start: 20110610, end: 20130411
  14. TRAMADOL [Concomitant]
     Indication: ANALGESIC THERAPY
     Dates: start: 20110421, end: 20130411
  15. VISCOTEARS [Concomitant]
     Indication: DRY EYE
     Dates: start: 20060802, end: 20130411
  16. ZOPLICONE [Concomitant]
     Indication: INSOMNIA
     Dates: start: 20120903, end: 20130411

REACTIONS (1)
  - Blood creatinine increased [Fatal]
